FAERS Safety Report 5326355-1 (Version None)
Quarter: 2007Q2

REPORT INFORMATION
  Report Type: 
  Country: None (occurrence: None)
  Receive Date: 20070516
  Receipt Date: 20070507
  Transmission Date: 20071010
  Serious: Yes (Disabling, Other)
  Sender: FDA-Public Use
  Company Number: B0446205A

PATIENT
  Age: 50 Year
  Sex: Male

DRUGS (3)
  1. KIVEXA [Suspect]
     Indication: HIV INFECTION
     Dosage: 1TAB PER DAY
     Route: 048
     Dates: start: 20060914, end: 20060920
  2. COMBIVIR [Concomitant]
     Indication: HIV INFECTION
     Dosage: 1TAB TWICE PER DAY
     Route: 048
     Dates: start: 20000308, end: 20060914
  3. EFAVIRENZ [Concomitant]
     Indication: HIV INFECTION
     Route: 048
     Dates: start: 19990723

REACTIONS (4)
  - SLUGGISHNESS [None]
  - SOMNOLENCE [None]
  - VISION BLURRED [None]
  - VITREOUS FLOATERS [None]
